FAERS Safety Report 14705934 (Version 5)
Quarter: 2018Q2

REPORT INFORMATION
  Report Type: Report from Study
  Country: BE (occurrence: BE)
  Receive Date: 20180402
  Receipt Date: 20180523
  Transmission Date: 20180711
  Serious: Yes (Death, Life-Threatening, Hospitalization, Other)
  Sender: FDA-Public Use
  Company Number: BE-SA-2018SA055017

PATIENT
  Age: 25 Year
  Sex: Female

DRUGS (13)
  1. ALEMTUZUMAB [Suspect]
     Active Substance: ALEMTUZUMAB
     Dosage: UNK UNK,UNK
     Route: 041
     Dates: end: 20161202
  2. FLUOXETINE [Concomitant]
     Active Substance: FLUOXETINE HYDROCHLORIDE
     Dosage: 20 MG,QD
     Route: 065
  3. GABAPENTIN. [Concomitant]
     Active Substance: GABAPENTIN
     Dosage: 300 MG,TID
     Route: 065
  4. YASMIN [Concomitant]
     Active Substance: DROSPIRENONE\ETHINYL ESTRADIOL
     Indication: CONTRACEPTION
     Dosage: UNK UNK,1X
     Route: 065
  5. D-CURE [Concomitant]
     Active Substance: CHOLECALCIFEROL
     Dosage: UNK UNK,QOW
     Route: 065
  6. AMANTADINE. [Concomitant]
     Active Substance: AMANTADINE HYDROCHLORIDE
     Dosage: UNK UNK,1X
     Route: 065
  7. ZALDIAR [Concomitant]
     Active Substance: ACETAMINOPHEN\TRAMADOL HYDROCHLORIDE
     Indication: NEURALGIA
     Dosage: UNK UNK,TID
     Route: 065
  8. RIVOTRIL [Concomitant]
     Active Substance: CLONAZEPAM
     Dosage: 1 MG,UNK
     Route: 065
  9. DAFALGAN [Concomitant]
     Active Substance: ACETAMINOPHEN
     Indication: PAIN
     Dosage: 1 G,PRN
     Route: 065
  10. ALEMTUZUMAB [Suspect]
     Active Substance: ALEMTUZUMAB
     Indication: MULTIPLE SCLEROSIS
     Dosage: UNK UNK,UNK
     Route: 041
     Dates: start: 20151207
  11. VESICARE [Concomitant]
     Active Substance: SOLIFENACIN SUCCINATE
     Dosage: UNK UNK,QD
     Route: 065
  12. VALPROATE SODIUM. [Concomitant]
     Active Substance: VALPROATE SODIUM
     Dosage: 300 MG,QD
     Route: 065
  13. NABUMETONE. [Concomitant]
     Active Substance: NABUMETONE
     Indication: MUSCULOSKELETAL PAIN
     Dosage: 500 MG,1X
     Route: 065

REACTIONS (13)
  - Pulmonary embolism [Fatal]
  - Pulmonary alveolar haemorrhage [Fatal]
  - Arrhythmia [Fatal]
  - Cerebral haemorrhage [Fatal]
  - Headache [Unknown]
  - Multiple sclerosis relapse [Unknown]
  - Nuclear magnetic resonance imaging abnormal [Unknown]
  - Tremor [Unknown]
  - Immune thrombocytopenic purpura [Fatal]
  - Platelet count decreased [Fatal]
  - Cardiac failure acute [Fatal]
  - Ill-defined disorder [Unknown]
  - Myocardial infarction [Fatal]
